FAERS Safety Report 8320396-8 (Version None)
Quarter: 2012Q2

REPORT INFORMATION
  Report Type: 
  Country: None (occurrence: None)
  Receive Date: 20120426
  Receipt Date: 20120426
  Transmission Date: 20120825
  Serious: No
  Sender: FDA-Public Use
  Company Number: None

PATIENT

DRUGS (2)
  1. PRESUN ULTRA SUNSCREEN SPF 30 CREAM [Suspect]
     Indication: PROPHYLAXIS
     Dosage: 1 DOLLIP PRN TOPICAL  (X3 OVER 1 MONTH)
     Route: 061
  2. PRESUN ULTRA SUNSCREEN SPF 30 CREAM [Suspect]
     Indication: SKIN CANCER
     Dosage: 1 DOLLIP PRN TOPICAL  (X3 OVER 1 MONTH)
     Route: 061

REACTIONS (1)
  - SWELLING [None]
